FAERS Safety Report 5252082-5 (Version None)
Quarter: 2007Q1

REPORT INFORMATION
  Report Type: 
  Country: None (occurrence: None)
  Receive Date: 20070227
  Receipt Date: 20060731
  Transmission Date: 20070707
  Serious: Yes (Life-Threatening, Hospitalization)
  Sender: FDA-Public Use
  Company Number: DSA_29388_2007

PATIENT
  Age: 67 Year
  Sex: Female

DRUGS (10)
  1. DILTIAZEM HYDROCHLORIDE [Suspect]
     Indication: ARRHYTHMIA
     Dosage: VAR CON IV
     Route: 042
     Dates: start: 20060620, end: 20060627
  2. DILTIAZEM HYDROCHLORIDE [Suspect]
     Indication: HYPERTENSION
     Dosage: VAR CON IV
     Route: 042
     Dates: start: 20060620, end: 20060627
  3. PROPOFOL [Suspect]
     Indication: SEDATION
     Dosage: VAR CON IV
     Route: 042
     Dates: start: 20060620, end: 20060627
  4. DOPAMINE HCL [Suspect]
     Indication: SHOCK
     Dosage: VAR IV
     Route: 042
     Dates: start: 20060619, end: 20060627
  5. DOPAMINE HCL [Suspect]
     Indication: URINE OUTPUT
     Dosage: VAR IV
     Route: 042
     Dates: start: 20060619, end: 20060627
  6. FUTHAN [Suspect]
     Indication: DISSEMINATED INTRAVASCULAR COAGULATION
     Dosage: 100 MG Q DAY IV
     Route: 042
     Dates: start: 20060619, end: 20060701
  7. FUTHAN [Suspect]
     Indication: PROPHYLAXIS
     Dosage: 100 MG Q DAY IV
     Route: 042
     Dates: start: 20060619, end: 20060701
  8. PANSPORIN [Concomitant]
  9. MIRACLID [Suspect]
     Indication: DISSEMINATED INTRAVASCULAR COAGULATION
     Dosage: 150 MG Q DAY IV
     Dates: start: 20060619, end: 20060704
  10. MIRACLID [Suspect]
     Indication: PROPHYLAXIS
     Dosage: 150 MG Q DAY IV
     Dates: start: 20060619, end: 20060704

REACTIONS (8)
  - AUTOIMMUNE HEPATITIS [None]
  - HAEMODIALYSIS [None]
  - HYPERBILIRUBINAEMIA [None]
  - INCISIONAL HERNIA [None]
  - PNEUMONIA [None]
  - POSTOPERATIVE WOUND INFECTION [None]
  - PROCEDURAL COMPLICATION [None]
  - SHOCK [None]
